FAERS Safety Report 9322832 (Version 2)
Quarter: 2014Q1

REPORT INFORMATION
  Report Type: Spontaneous
  Country: US (occurrence: US)
  Receive Date: 20130601
  Receipt Date: 20140203
  Transmission Date: 20141002
  Serious: No
  Sender: FDA-Public Use
  Company Number: US-ASTRAZENECA-2013SE38659

PATIENT
  Sex: 0

DRUGS (8)
  1. NEXIUM [Suspect]
     Route: 048
  2. NEXIUM [Suspect]
     Route: 048
     Dates: start: 20100104
  3. PRAVASTATIN [Concomitant]
     Indication: BLOOD CHOLESTEROL
     Route: 048
     Dates: start: 20100105
  4. IBUPROFEN [Concomitant]
  5. TOPIRAMATE [Concomitant]
     Indication: HEADACHE
     Dates: start: 20100105
  6. AMITRIPTYLIN [Concomitant]
  7. CEPHALEXIN [Concomitant]
     Dates: start: 20100302
  8. NOVOLOG [Concomitant]

REACTIONS (3)
  - Osteoporosis [Unknown]
  - Bone disorder [Unknown]
  - Multiple fractures [Unknown]
